FAERS Safety Report 9051357 (Version 1)
Quarter: 2013Q1

REPORT INFORMATION
  Report Type: Spontaneous
  Country: US (occurrence: US)
  Receive Date: 20130206
  Receipt Date: 20130206
  Transmission Date: 20140127
  Serious: No
  Sender: FDA-Public Use
  Company Number: US-009507513-1302USA001814

PATIENT
  Age: 62 None
  Sex: Male

DRUGS (5)
  1. PROVENTIL [Suspect]
     Indication: ASTHMA
     Dosage: UNK, PRN
     Dates: start: 199802
  2. FLOVENT [Concomitant]
  3. BENADRYL [Concomitant]
     Dosage: UNK, QPM
  4. FLUTICASONE PROPIONATE [Concomitant]
  5. ANTIMICROBIAL (UNSPECIFIED) [Concomitant]
     Indication: SINUSITIS

REACTIONS (4)
  - Choking [Recovering/Resolving]
  - Haemoptysis [Recovering/Resolving]
  - Throat irritation [Recovering/Resolving]
  - Product quality issue [Unknown]
